FAERS Safety Report 18173652 (Version 1)
Quarter: 2020Q3

REPORT INFORMATION
  Report Type: Spontaneous
  Country: US (occurrence: US)
  Receive Date: 20200820
  Receipt Date: 20200820
  Transmission Date: 20201103
  Serious: No
  Sender: FDA-Public Use
  Company Number: US-DRREDDYS-USA/USA/20/0126001

PATIENT
  Sex: Male

DRUGS (3)
  1. NUPERCAINAL [Suspect]
     Active Substance: DIBUCAINE
     Indication: ARTHROPOD BITE
     Route: 061
  2. NUPERCAINAL [Suspect]
     Active Substance: DIBUCAINE
     Indication: ONYCHOCLASIS
  3. NUPERCAINAL [Suspect]
     Active Substance: DIBUCAINE
     Indication: INJURY

REACTIONS (2)
  - Product use in unapproved indication [Unknown]
  - Expired product administered [Unknown]
